APPROVED DRUG PRODUCT: GLATIRAMER ACETATE
Active Ingredient: GLATIRAMER ACETATE
Strength: 20MG/ML
Dosage Form/Route: INJECTABLE;SUBCUTANEOUS
Application: A091646 | Product #001 | TE Code: AP
Applicant: MYLAN PHARMACEUTICALS INC
Approved: Oct 3, 2017 | RLD: No | RS: No | Type: RX